FAERS Safety Report 9787506 (Version 1)
Quarter: 2013Q4

REPORT INFORMATION
  Report Type: Report from Study
  Country: LT (occurrence: LT)
  Receive Date: 20131230
  Receipt Date: 20131230
  Transmission Date: 20140711
  Serious: Yes (Death)
  Sender: FDA-Public Use
  Company Number: LT-BRISTOL-MYERS SQUIBB COMPANY-19941665

PATIENT
  Age: 63 Year
  Sex: Male
  Weight: 42 kg

DRUGS (2)
  1. CETUXIMAB [Suspect]
     Indication: NON-SMALL CELL LUNG CANCER
     Dosage: 250MG/M2?10DEC12?DEC12-18JAN13
     Route: 042
     Dates: start: 20121210
  2. GEMCITABINE [Suspect]
     Indication: NON-SMALL CELL LUNG CANCER
     Route: 042
     Dates: start: 20121210, end: 20130111

REACTIONS (1)
  - Pulmonary embolism [Fatal]
